FAERS Safety Report 7971883-3 (Version None)
Quarter: 2011Q4

REPORT INFORMATION
  Report Type: 
  Country: None (occurrence: None)
  Receive Date: 20111212
  Receipt Date: 20111129
  Transmission Date: 20120403
  Serious: Yes (Other)
  Sender: FDA-Public Use
  Company Number: US-BAYER-2011-017927

PATIENT
  Sex: Male
  Weight: 83 kg

DRUGS (60)
  1. OPTIMARK [Suspect]
     Indication: ANGIOGRAM
  2. PREDNISONE [Concomitant]
  3. ANCEF [Concomitant]
  4. DIOVAN [Concomitant]
  5. SENSIPAR [Concomitant]
  6. COUMADIN [Concomitant]
  7. LEVOTHYROXINE SODIUM [Concomitant]
  8. MAGNEVIST [Suspect]
  9. ACETAMINOPHEN [Concomitant]
  10. PREVACID [Concomitant]
  11. LOPRESSOR [Concomitant]
  12. AMIODARONE HCL [Concomitant]
  13. MULTIHANCE [Suspect]
     Indication: ANGIOGRAM
  14. PROHANCE [Suspect]
     Indication: ANGIOGRAM
  15. EPOGEN [Concomitant]
  16. NORVASC [Concomitant]
  17. PHOSLO [Concomitant]
  18. ZAROXOLYN [Concomitant]
  19. DIURIL [Concomitant]
  20. DARVOCET [Concomitant]
  21. VERAPAMIL [Concomitant]
  22. PERCOCET [Concomitant]
  23. SODIUM POLYSTYRENE SULFONATE [Concomitant]
  24. OMNISCAN [Suspect]
     Indication: NUCLEAR MAGNETIC RESONANCE IMAGING
  25. DEMADEX [Concomitant]
  26. CYTOXAN [Concomitant]
  27. ACCUPRIL [Concomitant]
  28. NEURONTIN [Concomitant]
  29. ASPIRIN [Concomitant]
  30. HUMULIN [INSULIN HUMAN INJECTION, ISOPHANE] [Concomitant]
  31. WARFARIN SODIUM [Concomitant]
  32. MAGNEVIST [Suspect]
     Indication: NUCLEAR MAGNETIC RESONANCE IMAGING
     Dosage: 20 ML, ONCE
     Route: 042
     Dates: start: 19980518, end: 19980518
  33. MONOPRIL [Concomitant]
  34. CATAPRES [Concomitant]
  35. MECLIZINE [Concomitant]
  36. FLOMAX [Concomitant]
  37. OPTIMARK [Suspect]
     Indication: NUCLEAR MAGNETIC RESONANCE IMAGING
  38. LASIX [Concomitant]
  39. NORVASC [Concomitant]
  40. HYDRALAZINE HCL [Concomitant]
  41. LIPITOR [Concomitant]
  42. RENAGEL [Concomitant]
  43. RENVELA [Concomitant]
  44. MAGNEVIST [Suspect]
     Indication: ANGIOGRAM
  45. MAGNEVIST [Suspect]
     Indication: NUCLEAR MAGNETIC RESONANCE IMAGING BRAIN
  46. MULTIHANCE [Suspect]
     Indication: NUCLEAR MAGNETIC RESONANCE IMAGING
  47. PROHANCE [Suspect]
     Indication: NUCLEAR MAGNETIC RESONANCE IMAGING
  48. COVERA-HS [Concomitant]
  49. PLAVIX [Concomitant]
  50. KAYEXALATE [Concomitant]
  51. CLONIDINE [Concomitant]
  52. PROCRIT [Concomitant]
  53. OMNISCAN [Suspect]
     Indication: ANGIOGRAM
  54. POTASSIUM CHLORIDE [Concomitant]
  55. NEPHROCAPS [VIT C,VIT H,B12,B9,B3,PANTOTHEN AC,B6,B2,B1 HCL] [Concomitant]
  56. PEPCID [Concomitant]
  57. NEXIUM [Concomitant]
  58. NOVOLIN [INSULIN] [Concomitant]
  59. ASCORBIC ACID [Concomitant]
  60. FISH OIL [Concomitant]

REACTIONS (13)
  - DRY SKIN [None]
  - RASH [None]
  - OEDEMA PERIPHERAL [None]
  - MOBILITY DECREASED [None]
  - SKIN TIGHTNESS [None]
  - SKIN HYPERTROPHY [None]
  - JOINT RANGE OF MOTION DECREASED [None]
  - STASIS DERMATITIS [None]
  - MUSCULAR WEAKNESS [None]
  - NEPHROGENIC SYSTEMIC FIBROSIS [None]
  - PAIN [None]
  - SKIN DISCOLOURATION [None]
  - PRURITUS [None]
